FAERS Safety Report 9595214 (Version 4)
Quarter: 2015Q1

REPORT INFORMATION
  Report Type: Spontaneous
  Country: US (occurrence: US)
  Receive Date: 20131004
  Receipt Date: 20150127
  Transmission Date: 20150721
  Serious: Yes (Hospitalization, Other)
  Sender: FDA-Public Use
  Company Number: US-BAYER-2013-119711

PATIENT
  Age: 32 Year
  Sex: Female
  Weight: 151.93 kg

DRUGS (10)
  1. ENOXAPARIN [Concomitant]
     Active Substance: ENOXAPARIN
  2. OCELLA [Suspect]
     Active Substance: DROSPIRENONE\ETHINYL ESTRADIOL
     Dosage: UNK
     Route: 048
     Dates: start: 2009, end: 201110
  3. FEXOFENADINE HYDROCHLORIDE. [Concomitant]
     Active Substance: FEXOFENADINE HYDROCHLORIDE
     Route: 048
  4. ZOFRAN [Concomitant]
     Active Substance: ONDANSETRON HYDROCHLORIDE
  5. AMLODIPINE [Concomitant]
     Active Substance: AMLODIPINE BESYLATE
  6. LEVOTHYROXINE [Concomitant]
     Active Substance: LEVOTHYROXINE
  7. LABETALOL [Concomitant]
     Active Substance: LABETALOL\LABETALOL HYDROCHLORIDE
     Dosage: 200 MG, BID
     Route: 048
  8. ALBUTEROL. [Concomitant]
     Active Substance: ALBUTEROL
     Indication: SEASONAL ALLERGY
  9. LEVOTHYROXINE [Concomitant]
     Active Substance: LEVOTHYROXINE
     Dosage: 175 MCG
     Route: 048
     Dates: start: 20110825
  10. EPIPEN [Concomitant]
     Active Substance: EPINEPHRINE

REACTIONS (10)
  - Thrombosis [None]
  - Injury [Recovered/Resolved]
  - Pain [None]
  - Cerebrovascular accident [None]
  - Emotional distress [None]
  - Pulmonary embolism [Recovered/Resolved]
  - Deep vein thrombosis [None]
  - Fear of death [None]
  - Pain [Recovered/Resolved]
  - Pulmonary function test abnormal [Recovered/Resolved]

NARRATIVE: CASE EVENT DATE: 20111005
